FAERS Safety Report 11812889 (Version 1)
Quarter: 2015Q4

REPORT INFORMATION
  Report Type: Spontaneous
  Country: DE (occurrence: DE)
  Receive Date: 20151209
  Receipt Date: 20151209
  Transmission Date: 20160305
  Serious: Yes (Congenital Anomaly, Other)
  Sender: FDA-Public Use
  Company Number: DE-AUROBINDO-AUR-APL-2015-11133

PATIENT
  Sex: Male
  Weight: .57 kg

DRUGS (5)
  1. NASENSPRAY RATIOPHARM [Concomitant]
     Indication: RHINITIS
     Route: 064
  2. FOLIO FORTE [Concomitant]
     Active Substance: FOLIC ACID\VITAMINS
     Indication: PROPHYLAXIS OF NEURAL TUBE DEFECT
     Dosage: 0.8 UNK, DAILY
     Route: 064
     Dates: start: 20141029, end: 20150401
  3. MIFEGYNE [Concomitant]
     Active Substance: MIFEPRISTONE
     Indication: LABOUR INDUCTION
     Dosage: UNK
     Route: 064
     Dates: start: 20150331, end: 20150331
  4. METOPROLOL 100MG [Suspect]
     Active Substance: METOPROLOL
     Indication: HYPERTENSION
     Dosage: 100 MG, TWO TIMES A DAY
     Route: 064
     Dates: start: 20141029, end: 20150401
  5. PRESINOL [Concomitant]
     Active Substance: METHYLDOPA
     Indication: HYPERTENSION
     Dosage: 250 MG, TWO TIMES A DAY
     Route: 064
     Dates: start: 20141217, end: 20141222

REACTIONS (5)
  - Low birth weight baby [Not Recovered/Not Resolved]
  - Spina bifida [Not Recovered/Not Resolved]
  - Arnold-Chiari malformation [Not Recovered/Not Resolved]
  - Foetal exposure during pregnancy [Not Recovered/Not Resolved]
  - Meningomyelocele [Not Recovered/Not Resolved]
